FAERS Safety Report 15088203 (Version 1)
Quarter: 2018Q2

REPORT INFORMATION
  Report Type: Report from Study
  Country: DE (occurrence: DE)
  Receive Date: 20180629
  Receipt Date: 20180629
  Transmission Date: 20180711
  Serious: Yes (Hospitalization)
  Sender: FDA-Public Use
  Company Number: DE-TEVA-2018-DE-915356

PATIENT
  Sex: Male
  Weight: 70 kg

DRUGS (10)
  1. GRANISETRON [Concomitant]
     Active Substance: GRANISETRON
     Indication: PREMEDICATION
     Dosage: DAY 1, DAY 8, REPETITION DAY 22
     Route: 042
     Dates: start: 20130121, end: 20130722
  2. VERGENTAN [Concomitant]
     Active Substance: ALIZAPRIDE HYDROCHLORIDE
     Indication: PREMEDICATION
     Dosage: DAY 1, DAY 8, REPETITION DAY 22
     Route: 042
     Dates: start: 20130121, end: 20130304
  3. DEXAMETHASON [Concomitant]
     Active Substance: DEXAMETHASONE
     Indication: LUNG CANCER METASTATIC
     Dosage: DAY 1, DAY 8, REPETITION DAY 22
     Route: 042
     Dates: start: 20130121, end: 20130722
  4. AVASTIN [Suspect]
     Active Substance: BEVACIZUMAB
     Indication: LUNG ADENOCARCINOMA
     Dosage: EVERY 3 WEEKS
     Route: 042
     Dates: start: 20130225, end: 20130715
  5. TAVEGIL [Concomitant]
     Active Substance: CLEMASTINE FUMARATE
     Indication: PREMEDICATION
     Route: 042
     Dates: start: 20130225, end: 20130722
  6. CISPLATIN. [Suspect]
     Active Substance: CISPLATIN
     Indication: LUNG NEOPLASM MALIGNANT
     Dosage: ON DAY 1 AND 8 OF EACH 3 WEEK CYCLE.
     Route: 042
     Dates: start: 20130121, end: 20130304
  7. PEMETREXED DISODIUM [Suspect]
     Active Substance: PEMETREXED DISODIUM
     Indication: LUNG NEOPLASM MALIGNANT
     Dosage: EVERY 3 WEEKS
     Route: 042
     Dates: start: 20130121, end: 20130218
  8. CARBOPLATIN. [Suspect]
     Active Substance: CARBOPLATIN
     Indication: LUNG NEOPLASM MALIGNANT
     Dosage: EVERY 3 WEEKS
     Route: 042
     Dates: start: 20130318, end: 20130715
  9. PACLITAXEL. [Suspect]
     Active Substance: PACLITAXEL
     Indication: LUNG NEOPLASM MALIGNANT
     Dosage: EVERY WEEKS
     Route: 042
     Dates: start: 20130318, end: 20130722
  10. RANITIC [Concomitant]
     Active Substance: RANITIDINE HYDROCHLORIDE
     Dosage: GIVEN ON DAY 1, 8 AND 15 OF CYCLE
     Route: 042
     Dates: start: 20130318, end: 20130722

REACTIONS (4)
  - Leukopenia [Recovering/Resolving]
  - General physical health deterioration [Not Recovered/Not Resolved]
  - Tinnitus [Unknown]
  - Hypoacusis [Unknown]

NARRATIVE: CASE EVENT DATE: 20130225
